FAERS Safety Report 6659112-4 (Version None)
Quarter: 2010Q1

REPORT INFORMATION
  Report Type: 
  Country: None (occurrence: None)
  Receive Date: 20100330
  Receipt Date: 20100315
  Transmission Date: 20100710
  Serious: No
  Sender: FDA-Public Use
  Company Number: US-BIOGENIDEC-2010BI008964

PATIENT
  Age: 53 Year
  Sex: Female

DRUGS (1)
  1. TYSABRI [Suspect]
     Indication: MULTIPLE SCLEROSIS
     Route: 042
     Dates: start: 20070827

REACTIONS (9)
  - DISLOCATION OF VERTEBRA [None]
  - FALL [None]
  - FATIGUE [None]
  - INTERVERTEBRAL DISC DISPLACEMENT [None]
  - JOINT DISLOCATION [None]
  - MULTIPLE SCLEROSIS RELAPSE [None]
  - PHLEBITIS [None]
  - RIB FRACTURE [None]
  - VARICOSE VEIN [None]
